FAERS Safety Report 8160272-7 (Version None)
Quarter: 2012Q1

REPORT INFORMATION
  Report Type: 
  Country: None (occurrence: None)
  Receive Date: 20120223
  Receipt Date: 20120223
  Transmission Date: 20120608
  Serious: Yes (Other)
  Sender: FDA-Public Use
  Company Number: None

PATIENT
  Age: 59 Year
  Sex: Female
  Weight: 63.502 kg

DRUGS (1)
  1. ICY HOT POWER GEL [Suspect]
     Indication: MYALGIA
     Dates: start: 20120215, end: 20120215

REACTIONS (5)
  - APPLICATION SITE VESICLES [None]
  - THERMAL BURN [None]
  - APPLICATION SITE PAIN [None]
  - APPLICATION SITE SWELLING [None]
  - APPLICATION SITE INFLAMMATION [None]
